FAERS Safety Report 7961400-6 (Version None)
Quarter: 2011Q4

REPORT INFORMATION
  Report Type: 
  Country: None (occurrence: None)
  Receive Date: 20111121
  Receipt Date: 20110930
  Transmission Date: 20120403
  Serious: No
  Sender: FDA-Public Use
  Company Number: 1000024383

PATIENT
  Age: 57 Year
  Sex: Female

DRUGS (2)
  1. VIIBRYD [Suspect]
     Indication: DEPRESSION
     Dosage: 10 MG (10 MG, 1 IN 1 D), ORAL
     Route: 048
     Dates: start: 20110913, end: 20110919
  2. VIIBRYD [Suspect]
     Dosage: 20 MG (20 MG, 1 IN 1 D), ORAL
     Route: 048
     Dates: start: 20110920, end: 20110928

REACTIONS (8)
  - NAUSEA [None]
  - HEADACHE [None]
  - DECREASED APPETITE [None]
  - DEPRESSION [None]
  - MYALGIA [None]
  - DIZZINESS [None]
  - CRYING [None]
  - BURNING SENSATION [None]
